APPROVED DRUG PRODUCT: CORDRAN
Active Ingredient: FLURANDRENOLIDE
Strength: 0.025% **Federal Register determination that product was not discontinued or withdrawn for safety or effectiveness reasons**
Dosage Form/Route: OINTMENT;TOPICAL
Application: N012806 | Product #004
Applicant: INA PHARMACEUTICS INC
Approved: Approved Prior to Jan 1, 1982 | RLD: Yes | RS: No | Type: DISCN